FAERS Safety Report 4983628-X (Version None)
Quarter: 2006Q2

REPORT INFORMATION
  Report Type: 
  Country: None (occurrence: None)
  Receive Date: 20060425
  Receipt Date: 20060425
  Transmission Date: 20061013
  Serious: Yes (Other)
  Sender: FDA-Public Use
  Company Number: None

PATIENT
  Sex: Male
  Weight: 65.7716 kg

DRUGS (2)
  1. NEVANAC [Suspect]
     Indication: EYE OPERATION
     Dosage: 3 DROPS A DAY
     Dates: start: 20060320, end: 20060324
  2. VIGAMOX [Suspect]
     Indication: EYE OPERATION
     Dosage: 3 DROPS A DAY
     Dates: start: 20060322, end: 20060324

REACTIONS (7)
  - ABDOMINAL PAIN UPPER [None]
  - ANOREXIA [None]
  - CHILLS [None]
  - FATIGUE [None]
  - HEADACHE [None]
  - PANIC ATTACK [None]
  - TREMOR [None]
